FAERS Safety Report 7437115-X (Version None)
Quarter: 2011Q2

REPORT INFORMATION
  Report Type: 
  Country: None (occurrence: None)
  Receive Date: 20110426
  Receipt Date: 20110426
  Transmission Date: 20111010
  Serious: Yes (Hospitalization)
  Sender: FDA-Public Use
  Company Number: IT-SANOFI-AVENTIS-2011SA025349

PATIENT
  Age: 86 Year
  Sex: Female

DRUGS (3)
  1. TRIATEC [Suspect]
     Indication: ESSENTIAL HYPERTENSION
     Route: 048
     Dates: start: 20101008, end: 20110315
  2. LASIX [Suspect]
     Indication: ESSENTIAL HYPERTENSION
     Route: 048
     Dates: start: 20101205, end: 20110315
  3. ACEDIUR [Suspect]
     Indication: ESSENTIAL HYPERTENSION
     Route: 048
     Dates: start: 20101210, end: 20110315

REACTIONS (2)
  - CARDIAC FAILURE [None]
  - DYSPNOEA [None]
